FAERS Safety Report 6811299-6 (Version None)
Quarter: 2010Q2

REPORT INFORMATION
  Report Type: 
  Country: None (occurrence: None)
  Receive Date: 20100629
  Receipt Date: 20100629
  Transmission Date: 20101027
  Serious: No
  Sender: FDA-Public Use
  Company Number: None

PATIENT
  Age: 20 Year
  Sex: Female

DRUGS (1)
  1. LIALDA [Suspect]
     Dosage: TAKE 2 TABLETS BY MOUTH DAILY
     Route: 048

REACTIONS (2)
  - DEHYDRATION [None]
  - GASTROINTESTINAL HAEMORRHAGE [None]
